FAERS Safety Report 4344146-5 (Version None)
Quarter: 2004Q1

REPORT INFORMATION
  Report Type: 
  Country: None (occurrence: None)
  Receive Date: 20040319
  Receipt Date: 20040213
  Transmission Date: 20041129
  Serious: No
  Sender: FDA-Public Use
  Company Number: US-JNJFOC-20040204159

PATIENT
  Age: 24 Year
  Sex: Female
  Weight: 62.1428 kg

DRUGS (1)
  1. ORTHO EVRA [Suspect]
     Indication: CONTRACEPTION
     Dates: start: 20040204, end: 20040209

REACTIONS (3)
  - ABDOMINAL DISTENSION [None]
  - BREAST TENDERNESS [None]
  - UTERINE SPASM [None]
